FAERS Safety Report 9781085 (Version 1)
Quarter: 2013Q4

REPORT INFORMATION
  Report Type: Report from Study
  Country: LB (occurrence: LB)
  Receive Date: 20131224
  Receipt Date: 20131224
  Transmission Date: 20140711
  Serious: Yes (Hospitalization)
  Sender: FDA-Public Use
  Company Number: LB-SA-2013SA132405

PATIENT
  Age: 50 Year
  Sex: Male

DRUGS (7)
  1. LANTUS SOLOSTAR [Suspect]
     Indication: DIABETES MELLITUS
     Dosage: DOSE:40 UNIT(S)
     Route: 058
     Dates: start: 201303, end: 201312
  2. DIAMICRON [Concomitant]
     Indication: DIABETES MELLITUS
     Route: 048
  3. METFORMIN HYDROCHLORIDE [Concomitant]
     Indication: DIABETES MELLITUS
     Route: 048
  4. ASPIRIN [Concomitant]
     Route: 048
  5. CRESTOR [Concomitant]
     Route: 048
  6. LIPANTHYL [Concomitant]
     Route: 048
  7. SOLOSTAR [Concomitant]
     Indication: DEVICE THERAPY
     Route: 058
     Dates: start: 201303, end: 201312

REACTIONS (1)
  - Gastrectomy [Unknown]
